FAERS Safety Report 14448880 (Version 2)
Quarter: 2018Q2

REPORT INFORMATION
  Report Type: Spontaneous
  Country: US (occurrence: US)
  Receive Date: 20180126
  Receipt Date: 20180507
  Transmission Date: 20180711
  Serious: No
  Sender: FDA-Public Use
  Company Number: US-LUNDBECK-DKLU2039017

PATIENT
  Sex: Male

DRUGS (2)
  1. NORTHERA [Suspect]
     Active Substance: DROXIDOPA
     Indication: AUTONOMIC NEUROPATHY
     Dosage: SCHEDULE C (TITRATION COMPLETE)
     Route: 048
     Dates: start: 20170909
  2. NORTHERA [Suspect]
     Active Substance: DROXIDOPA
     Route: 048

REACTIONS (3)
  - Dizziness [Not Recovered/Not Resolved]
  - Hypotension [Recovered/Resolved]
  - Feeling abnormal [Recovered/Resolved]
